FAERS Safety Report 8829893 (Version 2)
Quarter: 2012Q4

REPORT INFORMATION
  Report Type: 
  Country: JP (occurrence: JP)
  Receive Date: 20121008
  Receipt Date: 20121026
  Transmission Date: 20130627
  Serious: Yes (Other)
  Sender: FDA-Public Use
  Company Number: JP-PFIZER INC-2012246519

PATIENT
  Age: 5 Year
  Sex: Male

DRUGS (7)
  1. GABAPEN [Suspect]
     Indication: EPILEPSY
     Dosage: 500 mg, daily
     Route: 048
     Dates: start: 20101001, end: 20121001
  2. RENIVACE [Suspect]
     Dosage: 2.5 mg, daily
     Route: 048
     Dates: end: 20121001
  3. RIVOTRIL [Concomitant]
     Dosage: 0.45 mg, daily
     Route: 048
  4. DANTRIUM [Concomitant]
     Dosage: 25 mg, daily
     Route: 048
  5. CONTOL [Concomitant]
     Dosage: 3 mg, daily
     Route: 048
  6. HORIZON [Concomitant]
     Dosage: 5 mg, daily
     Route: 048
  7. TRACLEER [Concomitant]
     Dosage: 15.625 mg, daily
     Route: 048

REACTIONS (1)
  - Renal failure [Recovering/Resolving]
